FAERS Safety Report 18270123 (Version 1)
Quarter: 2020Q3

REPORT INFORMATION
  Report Type: Spontaneous
  Country: FR (occurrence: FR)
  Receive Date: 20200915
  Receipt Date: 20200915
  Transmission Date: 20201103
  Serious: Yes (Hospitalization)
  Sender: FDA-Public Use
  Company Number: FR-ROCHE-2677614

PATIENT
  Age: 63 Year
  Sex: Male
  Weight: 80 kg

DRUGS (9)
  1. DEXCHLORPHENIRAMINE MALEATE. [Concomitant]
     Active Substance: DEXCHLORPHENIRAMINE MALEATE
     Route: 048
  2. BACLOFENE [Concomitant]
     Active Substance: BACLOFEN
     Route: 048
  3. MIANSERINE HCL [Concomitant]
     Active Substance: MIANSERIN HYDROCHLORIDE
     Route: 048
  4. OCREVUS [Suspect]
     Active Substance: OCRELIZUMAB
     Indication: MULTIPLE SCLEROSIS
     Route: 041
     Dates: start: 20200814, end: 20200814
  5. DUPHALAC [Concomitant]
     Active Substance: LACTULOSE
     Route: 048
  6. AMLODIPINE BESILATE [Concomitant]
     Active Substance: AMLODIPINE BESYLATE
     Route: 048
  7. PARACETAMOL B BRAUN [Concomitant]
     Active Substance: ACETAMINOPHEN
     Dosage: STRENGTH: 10 MG/ML
     Route: 042
  8. METHYLPREDNISOLONE. [Concomitant]
     Active Substance: METHYLPREDNISOLONE
     Route: 041
  9. CIPROFLOXACINE [Concomitant]
     Active Substance: CIPROFLOXACIN
     Route: 048

REACTIONS (3)
  - Lymphopenia [Recovering/Resolving]
  - Monocytopenia [Recovered/Resolved]
  - Pyrexia [Recovered/Resolved]

NARRATIVE: CASE EVENT DATE: 20200814
